FAERS Safety Report 16801361 (Version 1)
Quarter: 2019Q3

REPORT INFORMATION
  Report Type: Report from Study
  Country: DE (occurrence: DE)
  Receive Date: 20190912
  Receipt Date: 20190912
  Transmission Date: 20191005
  Serious: Yes (Other)
  Sender: FDA-Public Use
  Company Number: DE-PFIZER INC-2018278856

PATIENT
  Age: 36 Year
  Sex: Female

DRUGS (44)
  1. DOCETAXEL. [Suspect]
     Active Substance: DOCETAXEL
     Dosage: 122.51 MG, EVERY 3 WEEKS
     Route: 042
     Dates: start: 20180223
  2. DOCETAXEL. [Suspect]
     Active Substance: DOCETAXEL
     Dosage: 123.36 MG, EVERY 3 WEEKS
     Route: 042
  3. TRASTUZUMAB. [Suspect]
     Active Substance: TRASTUZUMAB
     Dosage: 504 MG, EVERY 3 WEEKS
     Route: 042
     Dates: start: 20180202
  4. TRASTUZUMAB. [Suspect]
     Active Substance: TRASTUZUMAB
     Dosage: 372 MG, EVERY 3 WEEKS
     Route: 042
  5. TRASTUZUMAB. [Suspect]
     Active Substance: TRASTUZUMAB
     Dosage: 378 MG, EVERY 3 WEEKS
     Route: 042
  6. DOCETAXEL. [Suspect]
     Active Substance: DOCETAXEL
     Dosage: 123.36 MG, EVERY 3 WEEKS
     Route: 042
  7. PERTUZUMAB. [Suspect]
     Active Substance: PERTUZUMAB
     Dosage: 420 MG, EVERY 3 WEEKS
     Route: 042
     Dates: start: 20180223
  8. TRASTUZUMAB. [Suspect]
     Active Substance: TRASTUZUMAB
     Dosage: 378 MG, EVERY 3 WEEKS
     Route: 042
  9. DOCETAXEL. [Suspect]
     Active Substance: DOCETAXEL
     Dosage: 122.51 MG, EVERY 3 WEEKS
     Route: 042
     Dates: start: 20180223
  10. PERTUZUMAB. [Suspect]
     Active Substance: PERTUZUMAB
     Indication: HER-2 POSITIVE BREAST CANCER
     Dosage: 840 MG, EVERY 3 WEEKS
     Route: 042
     Dates: start: 20180202
  11. DOCETAXEL. [Suspect]
     Active Substance: DOCETAXEL
     Dosage: 124.4 MG, EVERY 3 WEEKS
     Route: 042
     Dates: start: 20180202
  12. DOCETAXEL. [Suspect]
     Active Substance: DOCETAXEL
     Dosage: 124.4 MG, EVERY 3 WEEKS
     Route: 042
     Dates: start: 20180202
  13. DOCETAXEL. [Suspect]
     Active Substance: DOCETAXEL
     Dosage: 123.36 MG, EVERY 3 WEEKS
     Route: 042
  14. PERTUZUMAB. [Suspect]
     Active Substance: PERTUZUMAB
     Dosage: 420 MG, EVERY 3 WEEKS
     Route: 042
     Dates: start: 20180223
  15. TRASTUZUMAB. [Suspect]
     Active Substance: TRASTUZUMAB
     Dosage: 372 MG, EVERY 3 WEEKS
     Route: 042
  16. TRASTUZUMAB. [Suspect]
     Active Substance: TRASTUZUMAB
     Dosage: 372 MG, EVERY 3 WEEKS
     Route: 042
  17. TRASTUZUMAB. [Suspect]
     Active Substance: TRASTUZUMAB
     Dosage: 366 MG, EVERY 3 WEEKS
     Route: 042
     Dates: start: 20180223
  18. TRASTUZUMAB. [Suspect]
     Active Substance: TRASTUZUMAB
     Dosage: 366 MG, EVERY 3 WEEKS
     Route: 042
     Dates: start: 20180223
  19. DOCETAXEL. [Suspect]
     Active Substance: DOCETAXEL
     Dosage: 124.4 MG, EVERY 3 WEEKS
     Route: 042
     Dates: start: 20180202
  20. DOCETAXEL. [Suspect]
     Active Substance: DOCETAXEL
     Dosage: 122.51 MG, EVERY 3 WEEKS
     Route: 042
     Dates: start: 20180223
  21. DOCETAXEL. [Suspect]
     Active Substance: DOCETAXEL
     Dosage: 124.2 MG, EVERY 3 WEEKS
     Route: 042
  22. DOCETAXEL. [Suspect]
     Active Substance: DOCETAXEL
     Dosage: 124.2 MG, EVERY 3 WEEKS
     Route: 042
  23. PERTUZUMAB. [Suspect]
     Active Substance: PERTUZUMAB
     Dosage: 840 MG, EVERY 3 WEEKS
     Route: 042
     Dates: start: 20180202
  24. PERTUZUMAB. [Suspect]
     Active Substance: PERTUZUMAB
     Dosage: 420 MG, EVERY 3 WEEKS
     Route: 042
     Dates: start: 20180223
  25. TRASTUZUMAB. [Suspect]
     Active Substance: TRASTUZUMAB
     Dosage: 366 MG, EVERY 3 WEEKS
     Route: 042
     Dates: start: 20180223
  26. DOCETAXEL. [Suspect]
     Active Substance: DOCETAXEL
     Indication: HER-2 POSITIVE BREAST CANCER
     Dosage: 124.4 MG, EVERY 3 WEEKS
     Route: 042
     Dates: start: 20180202
  27. DOCETAXEL. [Suspect]
     Active Substance: DOCETAXEL
     Dosage: 122.51 MG, EVERY 3 WEEKS
     Route: 042
     Dates: start: 20180223
  28. DOCETAXEL. [Suspect]
     Active Substance: DOCETAXEL
     Dosage: 124.2 MG, EVERY 3 WEEKS
     Route: 042
  29. DOCETAXEL. [Suspect]
     Active Substance: DOCETAXEL
     Dosage: 123.36 MG, EVERY 3 WEEKS
     Route: 042
  30. PERTUZUMAB. [Suspect]
     Active Substance: PERTUZUMAB
     Dosage: 840 MG, EVERY 3 WEEKS
     Route: 042
     Dates: start: 20180202
  31. PERTUZUMAB. [Suspect]
     Active Substance: PERTUZUMAB
     Dosage: 420 MG, EVERY 3 WEEKS
     Route: 042
     Dates: start: 20180223
  32. TRASTUZUMAB. [Suspect]
     Active Substance: TRASTUZUMAB
     Indication: HER-2 POSITIVE BREAST CANCER
     Dosage: 504 MG, EVERY 3 WEEKS
     Route: 042
     Dates: start: 20180202
  33. TRASTUZUMAB. [Suspect]
     Active Substance: TRASTUZUMAB
     Dosage: 366 MG, EVERY 3 WEEKS
     Route: 042
     Dates: start: 20180223
  34. TRASTUZUMAB. [Suspect]
     Active Substance: TRASTUZUMAB
     Dosage: 366 MG, EVERY 3 WEEKS
     Route: 042
     Dates: start: 20180223
  35. PERTUZUMAB. [Suspect]
     Active Substance: PERTUZUMAB
     Dosage: 840 MG, EVERY 3 WEEKS
     Route: 042
     Dates: start: 20180202
  36. TRASTUZUMAB. [Suspect]
     Active Substance: TRASTUZUMAB
     Dosage: 504 MG, EVERY 3 WEEKS
     Route: 042
     Dates: start: 20180202
  37. TRASTUZUMAB. [Suspect]
     Active Substance: TRASTUZUMAB
     Dosage: 504 MG, EVERY 3 WEEKS
     Route: 042
     Dates: start: 20180202
  38. TRASTUZUMAB. [Suspect]
     Active Substance: TRASTUZUMAB
     Dosage: 372 MG, EVERY 3 WEEKS
     Route: 042
  39. TRASTUZUMAB. [Suspect]
     Active Substance: TRASTUZUMAB
     Dosage: 378 MG, EVERY 3 WEEKS
     Route: 042
  40. DOCETAXEL. [Suspect]
     Active Substance: DOCETAXEL
     Dosage: 124.2 MG, EVERY 3 WEEKS
     Route: 042
  41. TRASTUZUMAB. [Suspect]
     Active Substance: TRASTUZUMAB
     Dosage: 504 MG, EVERY 3 WEEKS
     Route: 042
     Dates: start: 20180202
  42. TRASTUZUMAB. [Suspect]
     Active Substance: TRASTUZUMAB
     Dosage: 372 MG, EVERY 3 WEEKS
     Route: 042
  43. TRASTUZUMAB. [Suspect]
     Active Substance: TRASTUZUMAB
     Dosage: 378 MG, EVERY 3 WEEKS
     Route: 042
  44. TRASTUZUMAB. [Suspect]
     Active Substance: TRASTUZUMAB
     Dosage: 378 MG, EVERY 3 WEEKS
     Route: 042

REACTIONS (13)
  - Fatigue [Not Recovered/Not Resolved]
  - Paraesthesia [Not Recovered/Not Resolved]
  - Dermatitis acneiform [Recovered/Resolved]
  - Leukopenia [Recovered/Resolved]
  - Diarrhoea [Recovered/Resolved]
  - Anaemia [Recovered/Resolved]
  - Anaemia [Recovered/Resolved]
  - Dizziness [Not Recovered/Not Resolved]
  - Alopecia [Recovered/Resolved]
  - Neutropenia [Recovered/Resolved]
  - Dizziness [Not Recovered/Not Resolved]
  - Dry skin [Recovered/Resolved]
  - Stomatitis [Recovered/Resolved]

NARRATIVE: CASE EVENT DATE: 20180209
